FAERS Safety Report 21550681 (Version 4)
Quarter: 2023Q2

REPORT INFORMATION
  Report Type: Report from Study
  Country: US (occurrence: US)
  Receive Date: 20221103
  Receipt Date: 20230518
  Transmission Date: 20230722
  Serious: Yes (Hospitalization)
  Sender: FDA-Public Use
  Company Number: US-VERTEX PHARMACEUTICALS-2022-016054

PATIENT
  Age: 16 Year
  Sex: Male
  Weight: 73 kg

DRUGS (26)
  1. ELEXACAFTOR\IVACAFTOR\TEZACAFTOR [Suspect]
     Active Substance: ELEXACAFTOR\IVACAFTOR\TEZACAFTOR
     Indication: Cystic fibrosis
     Dosage: 4 TABS QAM, 1 TAB QPM
     Route: 048
     Dates: start: 20221013, end: 20221022
  2. PLACEBO [Suspect]
     Active Substance: UNSPECIFIED INGREDIENT
     Indication: Cystic fibrosis
     Dosage: UNK
     Route: 048
     Dates: start: 20221013, end: 20221022
  3. TRIKAFTA [Concomitant]
     Active Substance: ELEXACAFTOR\IVACAFTOR\TEZACAFTOR
     Indication: Cystic fibrosis
     Dosage: 2 TABS IN AM, 1 TAB IN PM
     Route: 048
     Dates: start: 20190109, end: 20221013
  4. TRIKAFTA [Concomitant]
     Active Substance: ELEXACAFTOR\IVACAFTOR\TEZACAFTOR
     Indication: Cystic fibrosis lung
     Dosage: 2 TABLETS QAM 1 TABLET QPM
     Route: 048
     Dates: start: 20221120
  5. PROVENTIL [Concomitant]
     Active Substance: ALBUTEROL
     Indication: Cystic fibrosis lung
     Dosage: 2.5 MG/3ML (0.083%)NEBULIZER, BID
     Dates: start: 20120521
  6. PROVENTIL [Concomitant]
     Active Substance: ALBUTEROL
     Dosage: 2.5 MG/0.5 ML NEBULIZER, QD (USE WITH HYPERSAL)
     Dates: start: 20130402
  7. PROVENTIL [Concomitant]
     Active Substance: ALBUTEROL
     Dosage: 3 ML, BID
     Dates: start: 20220906
  8. PROAIR HFA [Concomitant]
     Active Substance: ALBUTEROL SULFATE
     Indication: Cystic fibrosis lung
     Dosage: 2 PUFFS, Q4H, PRN
     Dates: start: 20130402
  9. PROAIR HFA [Concomitant]
     Active Substance: ALBUTEROL SULFATE
     Indication: Wheezing
  10. PROAIR HFA [Concomitant]
     Active Substance: ALBUTEROL SULFATE
     Indication: Dyspnoea
  11. ZYRTEC [Concomitant]
     Active Substance: CETIRIZINE HYDROCHLORIDE
     Indication: Chronic sinusitis
     Dosage: 10 MG, QD, PRN
     Route: 048
     Dates: start: 20170113
  12. ZYRTEC [Concomitant]
     Active Substance: CETIRIZINE HYDROCHLORIDE
     Indication: Conjunctivitis allergic
     Dosage: 10 MG
     Route: 048
     Dates: start: 20220329
  13. VITAMIN D3 [Concomitant]
     Active Substance: CHOLECALCIFEROL
     Indication: Vitamin D deficiency
     Dosage: 50 MICROGRAM, QD
     Route: 048
     Dates: start: 20130621, end: 20221022
  14. VITAMIN D3 [Concomitant]
     Active Substance: CHOLECALCIFEROL
     Dosage: 2000 INTERNATIONAL UNIT, QD
     Route: 048
     Dates: start: 20221023, end: 20221029
  15. PULMOZYME [Concomitant]
     Active Substance: DORNASE ALFA
     Indication: Cystic fibrosis lung
     Dosage: 2.5 MG, QD
     Dates: start: 20080924
  16. PULMOZYME [Concomitant]
     Active Substance: DORNASE ALFA
     Dosage: 2.5 ML, DAILY
     Dates: start: 20220713
  17. FLONASE [Concomitant]
     Active Substance: FLUTICASONE PROPIONATE
     Indication: Chronic sinusitis
     Dosage: 2  SPRAYS
     Route: 045
     Dates: start: 20120605
  18. FLONASE [Concomitant]
     Active Substance: FLUTICASONE PROPIONATE
     Indication: Conjunctivitis allergic
     Dosage: 50 MICROGRAM, BID
     Route: 045
     Dates: start: 20220818
  19. CREON [Concomitant]
     Active Substance: PANCRELIPASE AMYLASE\PANCRELIPASE LIPASE\PANCRELIPASE PROTEASE
     Indication: Pancreatic failure
     Dosage: 36 CAPSULES, QD
     Route: 048
     Dates: start: 20080326
  20. CREON [Concomitant]
     Active Substance: PANCRELIPASE AMYLASE\PANCRELIPASE LIPASE\PANCRELIPASE PROTEASE
     Dosage: 7 CAP TID WITH MEALS, 5 WITH SNACKS
     Route: 048
     Dates: start: 20220802
  21. SINGULAIR [Concomitant]
     Active Substance: MONTELUKAST SODIUM
     Indication: Chronic sinusitis
     Dosage: 10 MG, QHS
     Route: 048
     Dates: start: 20170221
  22. SINGULAIR [Concomitant]
     Active Substance: MONTELUKAST SODIUM
     Indication: Conjunctivitis allergic
     Dosage: 10 MG, DAILY
     Route: 048
     Dates: start: 20211213
  23. PROTONIX [Concomitant]
     Active Substance: PANTOPRAZOLE SODIUM
     Indication: Gastrooesophageal reflux disease
     Dosage: 40 MG, QD
     Route: 048
     Dates: start: 20220329
  24. SODIUM CHLORIDE [Concomitant]
     Active Substance: SODIUM CHLORIDE
     Indication: Cystic fibrosis lung
     Dosage: 4 ML, QD
     Dates: start: 20080924
  25. SODIUM CHLORIDE [Concomitant]
     Active Substance: SODIUM CHLORIDE
     Dosage: 4 ML, QD
     Dates: start: 20220131
  26. NEILMED SINUS RINSE [Concomitant]
     Active Substance: SODIUM BICARBONATE\SODIUM CHLORIDE

REACTIONS (2)
  - Pancreatitis [Recovered/Resolved]
  - Blood creatine phosphokinase increased [Recovered/Resolved]

NARRATIVE: CASE EVENT DATE: 20221023
